FAERS Safety Report 9505736 (Version 1)
Quarter: 2013Q1

REPORT INFORMATION
  Report Type: Spontaneous
  Country: US (occurrence: None)
  Receive Date: 20130220
  Receipt Date: 20130220
  Transmission Date: 20140127
  Serious: Yes (Other)
  Sender: FDA-Public Use
  Company Number: 1000041621

PATIENT
  Sex: Female

DRUGS (2)
  1. VIIBRYD [Suspect]
  2. BENICAR [Suspect]
     Indication: HYPERTENSION

REACTIONS (4)
  - Feeling abnormal [None]
  - Blood pressure increased [None]
  - Dizziness [None]
  - Syncope [None]
